FAERS Safety Report 7850725-0 (Version None)
Quarter: 2011Q4

REPORT INFORMATION
  Report Type: 
  Country: None (occurrence: None)
  Receive Date: 20111026
  Receipt Date: 20111022
  Transmission Date: 20120403
  Serious: No
  Sender: FDA-Public Use
  Company Number: US-TEVA-306423USA

PATIENT
  Sex: Female
  Weight: 54.48 kg

DRUGS (2)
  1. PLAN B ONE-STEP [Suspect]
     Indication: POST COITAL CONTRACEPTION
     Dosage: 1.5 MILLIGRAM;
     Route: 048
     Dates: start: 20111021, end: 20111021
  2. ZOLOFT [Concomitant]
     Indication: POST COITAL CONTRACEPTION
     Dosage: 50 MILLIGRAM;
     Route: 048
     Dates: start: 20110519

REACTIONS (3)
  - NERVOUSNESS [None]
  - ABDOMINAL PAIN [None]
  - HEADACHE [None]
